FAERS Safety Report 17687356 (Version 4)
Quarter: 2021Q4

REPORT INFORMATION
  Report Type: Spontaneous
  Country: US (occurrence: US)
  Receive Date: 20200421
  Receipt Date: 20211001
  Transmission Date: 20220303
  Serious: Yes (Other)
  Sender: FDA-Public Use
  Company Number: 2020SE52035

PATIENT
  Age: 24525 Day
  Sex: Male
  Weight: 78.5 kg

DRUGS (40)
  1. NEXIUM [Suspect]
     Active Substance: ESOMEPRAZOLE MAGNESIUM
     Indication: Gastrooesophageal reflux disease
     Route: 048
     Dates: start: 200102, end: 201501
  2. NEXIUM [Suspect]
     Active Substance: ESOMEPRAZOLE MAGNESIUM
     Indication: Gastrooesophageal reflux disease
     Dosage: 1-2 TIMES DAILY
     Route: 048
     Dates: start: 2001, end: 2018
  3. NEXIUM 24HR [Suspect]
     Active Substance: ESOMEPRAZOLE MAGNESIUM
     Indication: Gastrooesophageal reflux disease
     Dosage: 1-2 DAILY
     Route: 048
     Dates: start: 2014, end: 2018
  4. PRILOSEC [Suspect]
     Active Substance: OMEPRAZOLE MAGNESIUM
     Indication: Gastrooesophageal reflux disease
     Dosage: 1-2 TIMES DAILY
     Route: 048
     Dates: start: 1990, end: 1999
  5. PRILOSEC [Suspect]
     Active Substance: OMEPRAZOLE MAGNESIUM
     Indication: Gastrooesophageal reflux disease
     Dosage: 1-2 TIMES DAILY- GENERIC
     Route: 065
     Dates: start: 1990, end: 1999
  6. PRILOSEC OTC [Suspect]
     Active Substance: OMEPRAZOLE MAGNESIUM
     Indication: Gastrooesophageal reflux disease
     Dosage: 1-2TIMES DAILY
     Route: 048
     Dates: start: 2010, end: 2018
  7. PROTONIX [Suspect]
     Active Substance: PANTOPRAZOLE SODIUM
     Indication: Gastrooesophageal reflux disease
     Dosage: 1-2 TIMES DAILY
     Route: 065
     Dates: start: 2018
  8. PROTONIX [Suspect]
     Active Substance: PANTOPRAZOLE SODIUM
     Indication: Gastrooesophageal reflux disease
     Dosage: 1-2 TIMES DAILY GENERIC
     Route: 065
     Dates: start: 2018
  9. AVAPRO [Concomitant]
     Active Substance: IRBESARTAN
     Indication: Hypertension
     Dates: start: 1990, end: 2018
  10. XANEX [Concomitant]
     Indication: Anxiety
     Dates: start: 1990, end: 2018
  11. CLONAZEPAM [Concomitant]
     Active Substance: CLONAZEPAM
     Indication: Anxiety
     Dates: start: 1990, end: 2018
  12. CIALIS [Concomitant]
     Active Substance: TADALAFIL
     Indication: Gastrooesophageal reflux disease
     Dates: start: 1990, end: 2018
  13. CRESTOR [Concomitant]
     Active Substance: ROSUVASTATIN CALCIUM
     Indication: Cardiac disorder
     Dates: start: 1990, end: 2018
  14. OXYCODONE [Concomitant]
     Active Substance: OXYCODONE
     Indication: Pain
     Dates: start: 1990, end: 2018
  15. COREG [Concomitant]
     Active Substance: CARVEDILOL
     Indication: Cardiac flutter
     Dates: start: 1990, end: 2018
  16. FLOMAX [Concomitant]
     Active Substance: TAMSULOSIN HYDROCHLORIDE
     Indication: Dysuria
     Dates: start: 1990, end: 2018
  17. LASIX [Concomitant]
     Active Substance: FUROSEMIDE
     Indication: Fluid retention
     Dates: start: 2014
  18. SEROQUEL [Concomitant]
     Active Substance: QUETIAPINE FUMARATE
     Indication: Insomnia
     Dates: start: 1990, end: 2018
  19. ZANTAC [Concomitant]
     Active Substance: RANITIDINE HYDROCHLORIDE
  20. PEPTO-BISMOL [Concomitant]
     Active Substance: BISMUTH SUBSALICYLATE
  21. LORAZEPAM [Concomitant]
     Active Substance: LORAZEPAM
  22. AMOXICILLIN [Concomitant]
     Active Substance: AMOXICILLIN
  23. IBUPROFEN [Concomitant]
     Active Substance: IBUPROFEN
  24. CYCLOBENZAPRINE [Concomitant]
     Active Substance: CYCLOBENZAPRINE
  25. VENTOLINE HFA [Concomitant]
  26. CEPHALEXIN [Concomitant]
     Active Substance: CEPHALEXIN
  27. HYDROCODONE [Concomitant]
     Active Substance: HYDROCODONE
  28. OXYCODONE HYDROCHLORIDE [Concomitant]
     Active Substance: OXYCODONE HYDROCHLORIDE
  29. ASPIRIN [Concomitant]
     Active Substance: ASPIRIN
  30. RESTASIS [Concomitant]
     Active Substance: CYCLOSPORINE
  31. FENTANYL [Concomitant]
     Active Substance: FENTANYL
  32. ROSUVASTATIN [Concomitant]
     Active Substance: ROSUVASTATIN
  33. VALSARTAN [Concomitant]
     Active Substance: VALSARTAN
  34. ALBUTEROL [Concomitant]
     Active Substance: ALBUTEROL
  35. ALLOPURINOL [Concomitant]
     Active Substance: ALLOPURINOL
  36. ANDROGEL [Concomitant]
     Active Substance: TESTOSTERONE
  37. DOXAZOSIN [Concomitant]
     Active Substance: DOXAZOSIN MESYLATE
  38. LUNESTA [Concomitant]
     Active Substance: ESZOPICLONE
  39. SOTALOL HCI [Concomitant]
  40. QUETIAPINE [Concomitant]
     Active Substance: QUETIAPINE

REACTIONS (4)
  - Chronic kidney disease [Not Recovered/Not Resolved]
  - Renal failure [Unknown]
  - Chronic kidney disease-mineral and bone disorder [Unknown]
  - Nephrogenic anaemia [Unknown]

NARRATIVE: CASE EVENT DATE: 20130917
